FAERS Safety Report 6219630-X (Version None)
Quarter: 2009Q2

REPORT INFORMATION
  Report Type: 
  Country: None (occurrence: None)
  Receive Date: 20090609
  Receipt Date: 20090605
  Transmission Date: 20091009
  Serious: Yes (Death, Other)
  Sender: FDA-Public Use
  Company Number: AU-JNJFOC-20090601183

PATIENT
  Age: 50 Year
  Sex: Female
  Weight: 56.4 kg

DRUGS (15)
  1. TOPAMAX [Suspect]
     Route: 048
  2. TOPAMAX [Suspect]
     Route: 048
  3. TOPAMAX [Suspect]
     Indication: MIGRAINE PROPHYLAXIS
     Route: 048
  4. ANTIDEPRESSANT [Suspect]
     Indication: DRUG USE FOR UNKNOWN INDICATION
     Route: 065
  5. ZOLOFT [Suspect]
     Indication: DEPRESSION
     Route: 048
  6. MOGADON [Suspect]
     Indication: DRUG USE FOR UNKNOWN INDICATION
     Dosage: TAKE 1 NOCTE
  7. NORMISON [Suspect]
     Indication: DRUG USE FOR UNKNOWN INDICATION
     Dosage: ONE TAKE NOCTURNAL PM
     Route: 048
  8. SUMATRIPTAN SUCCINATE [Concomitant]
     Route: 048
  9. VERAPAMIL HYDROCHLORIDE [Concomitant]
     Dosage: TAKE 1 BD FOR 1 WEEK, THEN INCREASE TO TID FOR 1 WEEK THEN 2 BD
     Route: 048
  10. OROXINE [Concomitant]
     Indication: HYPOTHYROIDISM
  11. CRESTOR [Concomitant]
     Route: 048
  12. LEVOTHYROXINE SODIUM [Concomitant]
     Route: 048
  13. SOMAC [Concomitant]
     Dosage: 1 TAB PRN
     Route: 048
  14. OSTELIN VITAMIN D [Concomitant]
     Dosage: 1000LU GEL CAPSULE(60)
     Route: 048
  15. ACETAMINOPHEN W/ CODEINE [Concomitant]
     Dosage: 2 A DAY PRM
     Route: 048

REACTIONS (4)
  - APATHY [None]
  - COMPLETED SUICIDE [None]
  - DEPRESSION [None]
  - MEMORY IMPAIRMENT [None]
